FAERS Safety Report 20699695 (Version 9)
Quarter: 2025Q1

REPORT INFORMATION
  Report Type: Report from Study
  Country: US (occurrence: US)
  Receive Date: 20220412
  Receipt Date: 20250224
  Transmission Date: 20250409
  Serious: Yes (Other)
  Sender: MYLAN
  Company Number: US-MYLANLABS-2021M1037667

PATIENT
  Sex: Female
  Weight: 76.65 kg

DRUGS (12)
  1. GLATIRAMER ACETATE [Suspect]
     Active Substance: GLATIRAMER ACETATE
     Indication: Relapsing-remitting multiple sclerosis
     Dosage: 40 MILLIGRAM, 3XW (THREE TIME PER WEEK)
     Dates: start: 202105
  2. GLATIRAMER ACETATE [Suspect]
     Active Substance: GLATIRAMER ACETATE
     Indication: Multiple sclerosis
     Dosage: 40 MILLIGRAM, 3XW (THREE TIME PER WEEK)
     Route: 058
     Dates: start: 202105
  3. GLATIRAMER ACETATE [Suspect]
     Active Substance: GLATIRAMER ACETATE
     Dosage: 40 MILLIGRAM, 3XW (THREE TIME PER WEEK)
     Route: 058
     Dates: start: 202105
  4. GLATIRAMER ACETATE [Suspect]
     Active Substance: GLATIRAMER ACETATE
     Dosage: 40 MILLIGRAM, 3XW (THREE TIME PER WEEK)
     Dates: start: 202105
  5. GLATIRAMER ACETATE [Suspect]
     Active Substance: GLATIRAMER ACETATE
     Dosage: 40 MILLIGRAM, 3XW (THREE TIME PER WEEK)
     Route: 058
  6. GLATIRAMER ACETATE [Suspect]
     Active Substance: GLATIRAMER ACETATE
     Dosage: 40 MILLIGRAM, 3XW (THREE TIME PER WEEK)
     Route: 058
  7. GLATIRAMER ACETATE [Suspect]
     Active Substance: GLATIRAMER ACETATE
     Dosage: 40 MILLIGRAM, 3XW (THREE TIME PER WEEK)
  8. GLATIRAMER ACETATE [Suspect]
     Active Substance: GLATIRAMER ACETATE
     Dosage: 40 MILLIGRAM, 3XW (THREE TIME PER WEEK)
  9. GLATIRAMER ACETATE [Suspect]
     Active Substance: GLATIRAMER ACETATE
  10. GLATIRAMER ACETATE [Suspect]
     Active Substance: GLATIRAMER ACETATE
     Route: 058
  11. GLATIRAMER ACETATE [Suspect]
     Active Substance: GLATIRAMER ACETATE
  12. GLATIRAMER ACETATE [Suspect]
     Active Substance: GLATIRAMER ACETATE
     Route: 058

REACTIONS (31)
  - Multiple sclerosis relapse [Unknown]
  - Burning sensation [Unknown]
  - Lipoatrophy [Unknown]
  - Paraesthesia [Unknown]
  - Feeling abnormal [Unknown]
  - Viral infection [Unknown]
  - Abdominal pain upper [Unknown]
  - Limb discomfort [Unknown]
  - Salivary hypersecretion [Unknown]
  - Cardiac disorder [Unknown]
  - Feeling cold [Unknown]
  - Injection site mass [Not Recovered/Not Resolved]
  - Injection site bruising [Unknown]
  - Injection site swelling [Unknown]
  - Back pain [Unknown]
  - Arthralgia [Recovered/Resolved]
  - Injection site indentation [Unknown]
  - Injection site pruritus [Unknown]
  - Malaise [Unknown]
  - Anal incontinence [Unknown]
  - Dyspnoea [Unknown]
  - Chills [Unknown]
  - Speech disorder [Unknown]
  - Urticaria [Unknown]
  - Pruritus [Unknown]
  - Pain [Unknown]
  - Product taste abnormal [Unknown]
  - Intentional product misuse [Unknown]
  - Product use complaint [Unknown]
  - Drug ineffective [Unknown]
  - Lack of injection site rotation [Recovered/Resolved]
